FAERS Safety Report 4873269-7 (Version None)
Quarter: 2005Q4

REPORT INFORMATION
  Report Type: 
  Country: None (occurrence: None)
  Receive Date: 20051201
  Receipt Date: 20050802
  Transmission Date: 20060501
  Serious: No
  Sender: FDA-Public Use
  Company Number: 2005PV000866

PATIENT
  Age: 66 Year
  Sex: Male
  Weight: 130.6359 kg

DRUGS (13)
  1. BYETTA [Suspect]
     Indication: DIABETES MELLITUS NON-INSULIN-DEPENDENT
     Dosage: 5 MCG; BID; SC
     Route: 058
     Dates: start: 20050718
  2. ACTOS [Concomitant]
  3. LANTUS [Concomitant]
  4. PLAVIX [Concomitant]
  5. ASPIRIN [Concomitant]
  6. LEVOTHYROXINE SODIUM [Concomitant]
  7. TOPROL-XL [Concomitant]
  8. NORVASC [Concomitant]
  9. FOSINOPRIL SODIUM [Concomitant]
  10. GLYBURIDE [Concomitant]
  11. ZOCOR [Concomitant]
  12. IORATADINE [Concomitant]
  13. GLYBURIDE [Concomitant]

REACTIONS (3)
  - ANOREXIA [None]
  - EPISTAXIS [None]
  - WEIGHT DECREASED [None]
